FAERS Safety Report 8749070 (Version 2)
Quarter: 2012Q4

REPORT INFORMATION
  Report Type: Spontaneous
  Country: DE (occurrence: None)
  Receive Date: 20120806
  Receipt Date: 20120827
  Transmission Date: 20130627
  Serious: Yes (Hospitalization)
  Sender: FDA-Public Use
  Company Number: DE-JNJFOC-20120520988

PATIENT
  Age: 72 Year
  Sex: Male
  Weight: 109 kg

DRUGS (13)
  1. DACOGEN [Suspect]
     Indication: ACUTE MYELOID LEUKAEMIA
     Dosage: 46 MG, IN 1 DAY, INTRAVENOUS, 46 MG, IN 1 DAY, INTRAVENOUS, 40 MG, IN 1 DAY, INTRAVENOUS
     Route: 042
     Dates: start: 20120504, end: 20120509
  2. DACOGEN [Suspect]
     Indication: ACUTE MYELOID LEUKAEMIA
     Dosage: 46 MG, IN 1 DAY, INTRAVENOUS, 46 MG, IN 1 DAY, INTRAVENOUS, 40 MG, IN 1 DAY, INTRAVENOUS
     Route: 042
     Dates: start: 20120604, end: 20120608
  3. DACOGEN [Suspect]
     Indication: ACUTE MYELOID LEUKAEMIA
     Dosage: 46 MG, IN 1 DAY, INTRAVENOUS, 46 MG, IN 1 DAY, INTRAVENOUS, 40 MG, IN 1 DAY, INTRAVENOUS
     Route: 042
     Dates: start: 20120702, end: 20120706
  4. BACTRIM [Suspect]
     Indication: ANTIVIRAL PROPHYLAXIS
     Dosage: 960 MG, 3 IN 1 WEEK, ORAL
     Route: 048
     Dates: start: 20120504
  5. ACYCLOVIR SODIUM [Concomitant]
  6. COTRIM FORTE (BACTRIM) [Concomitant]
  7. RAMIPRIL [Concomitant]
  8. ESIDRIX [Concomitant]
  9. VFEND [Concomitant]
  10. CIPROFLOXACIN [Concomitant]
  11. CEFIXIME [Concomitant]
  12. AMPHO MORONAL (AMPHOTERICIN B) [Concomitant]
  13. PANTOZOL [Concomitant]

REACTIONS (5)
  - PNEUMONIA [None]
  - ASTHENIA [None]
  - ASPERGILLUS TEST POSITIVE [None]
  - FEBRILE NEUTROPENIA [None]
  - PULMONARY MYCOSIS [None]
